FAERS Safety Report 9125797 (Version 1)
Quarter: 2013Q1

REPORT INFORMATION
  Report Type: Report from Study
  Country: US (occurrence: US)
  Receive Date: 20130227
  Receipt Date: 20130227
  Transmission Date: 20140127
  Serious: Yes (Hospitalization)
  Sender: FDA-Public Use
  Company Number: PHHO2012US017358

PATIENT
  Age: 29 Year
  Sex: Male
  Weight: 107.75 kg

DRUGS (27)
  1. CEFUROXIME AXETIL [Suspect]
     Dates: start: 20121030, end: 20121120
  2. AZITHROMYCIN [Suspect]
     Indication: UPPER RESPIRATORY TRACT INFECTION
     Dates: start: 200805
  3. AZITHROMYCIN [Suspect]
     Dates: start: 20121030, end: 20121102
  4. CIPROFLOXACIN [Suspect]
     Indication: UPPER RESPIRATORY TRACT INFECTION
     Dates: start: 20121120
  5. STI571 [Suspect]
     Indication: MULTIPLE SCLEROSIS
     Dosage: 200 MG, QD
     Route: 048
     Dates: start: 20120802
  6. PREDNISONE [Concomitant]
     Dosage: 17 MG, QD
     Dates: start: 201004
  7. CLOBETASOL [Concomitant]
     Dates: start: 201005
  8. DUREZOL [Concomitant]
     Dates: start: 201108
  9. COSOPT [Concomitant]
     Dates: start: 201110
  10. MOXIFLOXACIN [Concomitant]
     Dates: start: 201105, end: 20121120
  11. ACYCLOVIR [Concomitant]
     Dates: start: 200805
  12. CALCIUM [Concomitant]
     Dates: start: 200805, end: 20121120
  13. ROPINIROLE [Concomitant]
     Dates: start: 201111
  14. OXYCODONE [Concomitant]
     Dates: start: 200805
  15. TEMAZEPAM [Concomitant]
     Dates: start: 201105
  16. TESTOSTERONE [Concomitant]
     Dates: start: 201108
  17. FLOVENT [Concomitant]
     Dates: start: 201202
  18. CYCLOBENZAPRINE [Concomitant]
     Dates: start: 201202
  19. CYCLOSPORINE [Concomitant]
     Dates: start: 201208
  20. COMBIGAN [Concomitant]
     Dates: start: 201208
  21. ERGOCALCIFEROL [Concomitant]
     Dates: start: 201208
  22. VALACYCLOVIR [Concomitant]
     Dates: start: 200805
  23. PROCHLORPERAZINE [Concomitant]
     Dates: start: 20121101
  24. ONDASETRON [Concomitant]
     Dates: start: 20121101
  25. PROMETHAZINE [Concomitant]
     Dates: start: 20121126
  26. MAGNESIUM [Concomitant]
     Dosage: UNK
     Dates: start: 200805, end: 20121120
  27. PROTEIN [Concomitant]
     Dosage: UNK
     Dates: start: 200805, end: 20121120

REACTIONS (1)
  - Diarrhoea haemorrhagic [Unknown]
